FAERS Safety Report 4447164-1 (Version None)
Quarter: 2004Q3

REPORT INFORMATION
  Report Type: 
  Country: None (occurrence: None)
  Receive Date: 20040813
  Receipt Date: 20040519
  Transmission Date: 20050211
  Serious: No
  Sender: FDA-Public Use
  Company Number: S04-USA-02967-01

PATIENT
  Age: 67 Year
  Sex: Female

DRUGS (12)
  1. NAMENDA [Suspect]
     Indication: DEMENTIA
     Dosage: 10 MG BID PO
     Route: 048
  2. NAMENDA [Suspect]
     Indication: MULTIPLE SCLEROSIS
     Dosage: 10 MG BID PO
     Route: 048
  3. NAMENDA [Suspect]
     Indication: DEMENTIA
  4. NAMENDA [Suspect]
     Indication: MULTIPLE SCLEROSIS
  5. SINEMENT [Concomitant]
  6. PLAVIX [Concomitant]
  7. FOSAMAX [Concomitant]
  8. POTASSIUM [Concomitant]
  9. VITAMIN C [Concomitant]
  10. ASPIRIN [Concomitant]
  11. FOLIC ACID [Concomitant]
  12. LOTREL [Concomitant]

REACTIONS (1)
  - DEMENTIA [None]
